FAERS Safety Report 17243546 (Version 1)
Quarter: 2020Q1

REPORT INFORMATION
  Report Type: Spontaneous
  Country: CH (occurrence: CH)
  Receive Date: 20200107
  Receipt Date: 20200107
  Transmission Date: 20200409
  Serious: Yes (Death, Life-Threatening)
  Sender: FDA-Public Use
  Company Number: CH-FRESENIUS KABI-FK202000071

PATIENT
  Age: 71 Year
  Sex: Male

DRUGS (27)
  1. EPINEPHRINE. [Suspect]
     Active Substance: EPINEPHRINE
     Indication: BLOOD PRESSURE DECREASED
     Dosage: IN TOTAL
     Dates: start: 20190917, end: 20190917
  2. CALCIUM CHLORIDE. [Concomitant]
     Active Substance: CALCIUM CHLORIDE
     Dates: start: 20190917, end: 20190917
  3. PROTAMINE [Concomitant]
     Active Substance: PROTAMINE
     Dates: start: 20190917, end: 20190917
  4. PARACETAMOL [Concomitant]
     Active Substance: ACETAMINOPHEN
     Dates: end: 20190916
  5. SUFENTANIL CITRATE. [Concomitant]
     Active Substance: SUFENTANIL CITRATE
     Dates: start: 20190917, end: 20190917
  6. HYDROCORTISONE SODIUM SUCCINATE [Concomitant]
     Active Substance: HYDROCORTISONE SODIUM SUCCINATE
     Dates: start: 20190917, end: 20190917
  7. CALCIUM GLUCONATE. [Concomitant]
     Active Substance: CALCIUM GLUCONATE
     Dates: start: 20190917, end: 20190917
  8. LACTITOL [Concomitant]
     Active Substance: LACTITOL
     Dates: end: 20190916
  9. FACTOR I (FIBRINOGEN) [Concomitant]
     Active Substance: FIBRINOGEN HUMAN
     Dates: start: 20190917, end: 20190917
  10. GLYCERYL TRINITRATE [Suspect]
     Active Substance: NITROGLYCERIN
     Indication: PRODUCT USED FOR UNKNOWN INDICATION
     Dosage: TWICE IN TOTAL
     Route: 042
     Dates: start: 20190917, end: 20190917
  11. AMLODIPINE [Concomitant]
     Active Substance: AMLODIPINE BESYLATE
     Dates: end: 20190916
  12. KETAMINE [Concomitant]
     Active Substance: KETAMINE
     Dates: start: 20190917, end: 20190917
  13. INSULIN ASPART [Concomitant]
     Active Substance: INSULIN ASPART
     Dates: start: 20190917, end: 20190917
  14. ACETYLSALICYLIC ACID [Concomitant]
     Active Substance: ASPIRIN
     Dates: end: 20190916
  15. TORASEMIDE [Concomitant]
     Active Substance: TORSEMIDE
     Dates: end: 20190916
  16. SIMVASTATIN. [Concomitant]
     Active Substance: SIMVASTATIN
     Dates: end: 20190916
  17. EPHEDRINE HYDROCHLORIDE [Concomitant]
     Active Substance: EPHEDRINE HYDROCHLORIDE
     Dates: start: 20190917, end: 20190917
  18. SODIUM BICARBONATE. [Concomitant]
     Active Substance: SODIUM BICARBONATE
     Dates: start: 20190917, end: 20190917
  19. MORPHINE [Concomitant]
     Active Substance: MORPHINE
     Dates: start: 20190917, end: 20190917
  20. MIDAZOLAM HYDROCHLORIDE. [Concomitant]
     Active Substance: MIDAZOLAM HYDROCHLORIDE
     Dates: start: 20190917, end: 20190917
  21. PHENYLEPHRINE HYDROCHLORIDE. [Concomitant]
     Active Substance: PHENYLEPHRINE HYDROCHLORIDE
     Dates: start: 20190917, end: 20190917
  22. PROPOFOL MCT FRESENIUS (NOT SPECIFIED) [Suspect]
     Active Substance: PROPOFOL
     Indication: PRODUCT USED FOR UNKNOWN INDICATION
     Dosage: UNK
     Route: 042
     Dates: start: 20190917, end: 20190917
  23. LISINOPRIL. [Suspect]
     Active Substance: LISINOPRIL
     Indication: PRODUCT USED FOR UNKNOWN INDICATION
     Route: 048
     Dates: end: 20190916
  24. METOPROLOL SUCCINATE. [Concomitant]
     Active Substance: METOPROLOL SUCCINATE
     Dates: start: 20190810, end: 20190916
  25. ROCURONIUM BROMIDE. [Concomitant]
     Active Substance: ROCURONIUM BROMIDE
     Dates: start: 20190917, end: 20190917
  26. NOREPINEPHRINE BITARTRATE. [Concomitant]
     Active Substance: NOREPINEPHRINE BITARTRATE
     Dates: start: 20190917, end: 20190917
  27. HEPARIN SODIUM. [Concomitant]
     Active Substance: HEPARIN SODIUM
     Dates: start: 20190917, end: 20190917

REACTIONS (2)
  - Neurogenic shock [Fatal]
  - Hypovolaemic shock [Fatal]

NARRATIVE: CASE EVENT DATE: 20190917
